FAERS Safety Report 22532887 (Version 1)
Quarter: 2023Q2

REPORT INFORMATION
  Report Type: Spontaneous
  Country: NL (occurrence: NL)
  Receive Date: 20230607
  Receipt Date: 20230607
  Transmission Date: 20230721
  Serious: Yes (Other)
  Sender: FDA-Public Use
  Company Number: NL-NOVPHSZ-PHHY2019NL058334

PATIENT
  Age: 75 Year
  Sex: Male

DRUGS (3)
  1. CARBOPLATIN [Suspect]
     Active Substance: CARBOPLATIN
     Indication: Non-small cell lung cancer stage IV
     Dosage: 180 MG, UNK
     Route: 065
  2. PEMETREXED [Suspect]
     Active Substance: PEMETREXED
     Indication: Non-small cell lung cancer stage IV
     Dosage: 250 MG
     Route: 050
  3. PEMETREXED [Suspect]
     Active Substance: PEMETREXED
     Dosage: 200 MG
     Route: 050

REACTIONS (10)
  - Neuropathy peripheral [Unknown]
  - Neutrophil count decreased [Recovered/Resolved]
  - Platelet count decreased [Recovered/Resolved]
  - Upper respiratory tract infection [Unknown]
  - Hypogeusia [Unknown]
  - White blood cell count decreased [Recovered/Resolved]
  - Fatigue [Unknown]
  - Drug level decreased [Recovered/Resolved]
  - Off label use [Unknown]
  - Therapeutic response decreased [Unknown]
